FAERS Safety Report 4289066-X (Version None)
Quarter: 2004Q1

REPORT INFORMATION
  Report Type: 
  Country: None (occurrence: None)
  Receive Date: 20040209
  Receipt Date: 20030603
  Transmission Date: 20041129
  Serious: Yes (Hospitalization, Disabling)
  Sender: FDA-Public Use
  Company Number: WAES 0306USA00259

PATIENT
  Age: 57 Year
  Sex: Male
  Weight: 86 kg

DRUGS (6)
  1. DURAGESIC [Concomitant]
     Dates: start: 20000810
  2. PREVACID [Concomitant]
     Dates: start: 20000201
  3. VIOXX [Suspect]
     Indication: ARTHRITIS
     Route: 048
     Dates: start: 19990719, end: 19991018
  4. VIOXX [Suspect]
     Route: 048
     Dates: start: 19991019, end: 19991001
  5. VIOXX [Suspect]
     Route: 048
     Dates: start: 19991001, end: 20011114
  6. EFFEXOR [Concomitant]
     Dates: start: 20000801, end: 20031019

REACTIONS (31)
  - ANXIETY [None]
  - ARTHRALGIA [None]
  - ASTHENIA [None]
  - BLADDER DISORDER [None]
  - CEREBRAL ARTERY OCCLUSION [None]
  - DEPRESSION [None]
  - DISTURBANCE IN ATTENTION [None]
  - DRUG INEFFECTIVE [None]
  - DRUG WITHDRAWAL SYNDROME [None]
  - DYSKINESIA [None]
  - DYSPEPSIA [None]
  - DYSURIA [None]
  - FEELING ABNORMAL [None]
  - GAIT DISTURBANCE [None]
  - HEMIPARESIS [None]
  - HYPERREFLEXIA [None]
  - HYPOAESTHESIA [None]
  - INTERMITTENT CLAUDICATION [None]
  - ISCHAEMIC CEREBRAL INFARCTION [None]
  - ISCHAEMIC STROKE [None]
  - MEMORY IMPAIRMENT [None]
  - MENTAL IMPAIRMENT [None]
  - MOTOR DYSFUNCTION [None]
  - NECK PAIN [None]
  - NEPHROLITHIASIS [None]
  - OESOPHAGEAL DISORDER [None]
  - PAIN [None]
  - REFLEXES ABNORMAL [None]
  - SPINAL COLUMN STENOSIS [None]
  - SPINAL DISORDER [None]
  - VISUAL ACUITY REDUCED [None]
